FAERS Safety Report 5772739-7 (Version None)
Quarter: 2008Q2

REPORT INFORMATION
  Report Type: 
  Country: None (occurrence: None)
  Receive Date: 20080601
  Receipt Date: 20080304
  Transmission Date: 20081010
  Serious: No
  Sender: FDA-Public Use
  Company Number: US200803000924

PATIENT
  Age: 56 Year
  Sex: Female
  Weight: 79.4 kg

DRUGS (8)
  1. BYETTA [Suspect]
     Indication: TYPE 2 DIABETES MELLITUS
     Dosage: 10 UG, 2/D, SUBCUTANEOUS, 10 UG, DAILY (1/D, SUBCUTANEOUS)
     Route: 058
     Dates: start: 20080224, end: 20080201
  2. BYETTA [Suspect]
     Indication: TYPE 2 DIABETES MELLITUS
     Dosage: 10 UG, 2/D, SUBCUTANEOUS, 10 UG, DAILY (1/D, SUBCUTANEOUS)
     Route: 058
     Dates: start: 20080201
  3. ALTACE [Concomitant]
  4. NEURONTIN [Concomitant]
  5. AMITRIPTLINE HYDROCHLORIDE TAB [Concomitant]
  6. EFFEXOR [Concomitant]
  7. THYROID TAB [Concomitant]
  8. CARDIZEM [Concomitant]

REACTIONS (4)
  - BLOOD GLUCOSE DECREASED [None]
  - CHILLS [None]
  - FEELING COLD [None]
  - TREMOR [None]
